FAERS Safety Report 6527024-2 (Version None)
Quarter: 2010Q1

REPORT INFORMATION
  Report Type: 
  Country: None (occurrence: None)
  Receive Date: 20100105
  Receipt Date: 20081111
  Transmission Date: 20100710
  Serious: Yes (Hospitalization)
  Sender: FDA-Public Use
  Company Number: GB-NOVOPROD-279039

PATIENT
  Sex: Male
  Weight: 110.6 kg

DRUGS (9)
  1. INSULIN DETEMIR INNOLET [Suspect]
     Indication: INSULIN-REQUIRING TYPE 2 DIABETES MELLITUS
     Dosage: 24 IU, QD
     Route: 058
     Dates: start: 20080513
  2. INSULIN DETEMIR INNOLET [Suspect]
     Dosage: 26 IU, QD
     Route: 058
  3. ASPIRIN [Concomitant]
     Indication: PROPHYLAXIS
     Dosage: 150 MG, QD
     Route: 048
     Dates: start: 20000901, end: 20080904
  4. DOXAZOSIN [Concomitant]
     Indication: HYPERTENSION
     Dosage: 8 MG, QD
     Route: 048
     Dates: start: 20030501
  5. ATORVASTATIN CALCIUM [Concomitant]
     Indication: PROPHYLAXIS
     Dosage: 40 MG, QD
     Route: 048
     Dates: start: 20071201
  6. METFORMIN HCL [Concomitant]
     Dosage: 2550 MG, QD
     Route: 048
     Dates: start: 20020501
  7. LISINOPRIL [Concomitant]
     Indication: HYPERTENSION
     Dosage: 40 MG, QD
     Route: 048
     Dates: start: 20020201
  8. AMLODIPINE [Concomitant]
     Indication: HYPERTENSION
     Dosage: 10 MG, QD
     Route: 048
     Dates: start: 20020601
  9. OMEPRAZOLE [Concomitant]
     Dosage: 20 MG, QD
     Dates: start: 20080912

REACTIONS (4)
  - BARRETT'S OESOPHAGUS [None]
  - CELLULITIS [None]
  - FALL [None]
  - HIATUS HERNIA [None]
